FAERS Safety Report 6380764-0 (Version None)
Quarter: 2009Q3

REPORT INFORMATION
  Report Type: 
  Country: None (occurrence: None)
  Receive Date: 20090929
  Receipt Date: 20090921
  Transmission Date: 20100115
  Serious: No
  Sender: FDA-Public Use
  Company Number: US-B.I. PHARMACEUTICALS,INC./RIDGEFIELD-2009-BP-11174BP

PATIENT
  Sex: Female

DRUGS (8)
  1. SPIRIVA [Suspect]
     Indication: CHRONIC OBSTRUCTIVE PULMONARY DISEASE
     Dosage: 18 MCG
     Route: 055
     Dates: start: 20090901
  2. ALBUTEROL [Concomitant]
     Indication: ASTHMA
  3. SINGULAIR [Concomitant]
     Indication: ASTHMA
     Dates: start: 20060101
  4. PULMICORT [Concomitant]
     Indication: ASTHMA
  5. DYAZIDE [Concomitant]
     Indication: HYPERTENSION
     Dates: start: 20070101
  6. MULTI-VITAMIN [Concomitant]
     Indication: ROUTINE HEALTH MAINTENANCE
  7. PROTONIX [Concomitant]
     Indication: HIATUS HERNIA
     Dates: start: 20090601
  8. CLONAZEPAM [Concomitant]
     Indication: ANXIETY
     Dates: start: 20090601

REACTIONS (1)
  - DYSPNOEA [None]
